FAERS Safety Report 9500479 (Version 1)
Quarter: 2013Q3

REPORT INFORMATION
  Report Type: Spontaneous
  Country: US (occurrence: US)
  Receive Date: 20130905
  Receipt Date: 20130905
  Transmission Date: 20140515
  Serious: Yes (Hospitalization)
  Sender: FDA-Public Use
  Company Number: US-BAYER-2013-106662

PATIENT
  Age: 55 Year
  Sex: Female

DRUGS (11)
  1. YAZ [Suspect]
  2. YASMIN [Suspect]
  3. AMOXICILLIN [Concomitant]
     Dosage: UNK
     Dates: start: 20070318
  4. PREDNISONE [Concomitant]
     Dosage: UNK
     Dates: start: 20070318
  5. PRILOSEC [Concomitant]
     Dosage: UNK
     Dates: start: 20070318
  6. SINGULAIR [Concomitant]
     Dosage: UNK
     Dates: start: 20070318
  7. ZYRTEC [Concomitant]
     Dosage: UNK
     Dates: start: 20070318
  8. PERCOCET [Concomitant]
     Dosage: UNK
     Dates: start: 20070318
  9. IBUPROFEN [Concomitant]
     Dosage: UNK
     Dates: start: 20070318
  10. ALBUTEROL [Concomitant]
  11. NASONEX [Concomitant]

REACTIONS (2)
  - Pulmonary embolism [None]
  - Deep vein thrombosis [None]
